FAERS Safety Report 19932285 (Version 1)
Quarter: 2021Q4

REPORT INFORMATION
  Report Type: Spontaneous
  Country: US (occurrence: US)
  Receive Date: 20211008
  Receipt Date: 20211008
  Transmission Date: 20220304
  Serious: Yes (Other)
  Sender: FDA-Public Use
  Company Number: US-BAUSCH-BL-2021-033260

PATIENT
  Sex: Female

DRUGS (1)
  1. DIASTAT [Suspect]
     Active Substance: DIAZEPAM
     Indication: Product used for unknown indication
     Dosage: PRODUCT IS DISPENSED AT 5 MG DOSE
     Route: 065

REACTIONS (2)
  - Device malfunction [Unknown]
  - Product leakage [Unknown]
